FAERS Safety Report 5150204-8 (Version None)
Quarter: 2006Q4

REPORT INFORMATION
  Report Type: 
  Country: None (occurrence: None)
  Receive Date: 20061114
  Receipt Date: 20061017
  Transmission Date: 20070319
  Serious: Yes (Other)
  Sender: FDA-Public Use
  Company Number: NLWYE254717OCT06

PATIENT
  Sex: Female

DRUGS (5)
  1. ENBREL [Suspect]
     Indication: RHEUMATOID ARTHRITIS
     Route: 058
     Dates: start: 20050201, end: 20060929
  2. ENBREL [Suspect]
     Route: 058
     Dates: start: 20051013, end: 20060929
  3. NAPROXEN [Concomitant]
     Indication: RHEUMATOID ARTHRITIS
     Dosage: 250 MG WHEN NECESSARY
     Route: 065
     Dates: start: 20020201
  4. METHOTREXATE [Concomitant]
     Indication: RHEUMATOID ARTHRITIS
     Route: 065
     Dates: start: 19950201
  5. FOLIC ACID [Concomitant]
     Indication: PROPHYLAXIS
     Route: 065
     Dates: start: 19950201

REACTIONS (3)
  - CATARACT OPERATION [None]
  - POSTERIOR CAPSULE OPACIFICATION [None]
  - UVEITIS [None]
